FAERS Safety Report 5218082-6 (Version None)
Quarter: 2007Q1

REPORT INFORMATION
  Report Type: 
  Country: None (occurrence: None)
  Receive Date: 20061130
  Receipt Date: 20060817
  Transmission Date: 20070707
  Serious: Yes (Hospitalization, Other)
  Sender: FDA-Public Use
  Company Number: US200605004077

PATIENT
  Age: 57 Year
  Sex: Female
  Weight: 88.9 kg

DRUGS (9)
  1. ZYPREXA [Suspect]
     Dosage: 2.5 MG
     Dates: start: 20010701, end: 20040624
  2. PAROXETINE [Concomitant]
  3. REMERON [Concomitant]
  4. ZOLOFT [Concomitant]
  5. EFFEXOR [Concomitant]
  6. CELEXA [Concomitant]
  7. VITAMIN E [Concomitant]
  8. DIPYRIDAMOLE [Concomitant]
  9. LEVOXYL [Concomitant]

REACTIONS (3)
  - CONVULSION [None]
  - DIABETES MELLITUS [None]
  - HYPERTENSION [None]
